FAERS Safety Report 9009304 (Version 2)
Quarter: 2013Q1

REPORT INFORMATION
  Report Type: Report from Study
  Country: US (occurrence: US)
  Receive Date: 20130111
  Receipt Date: 20130211
  Transmission Date: 20140127
  Serious: Yes (Death, Other)
  Sender: FDA-Public Use
  Company Number: US-TEVA-379852USA

PATIENT
  Sex: Female

DRUGS (9)
  1. CLOZAPINE [Suspect]
     Indication: SCHIZOPHRENIA
     Route: 048
  2. VITAMIN B12 [Concomitant]
  3. SENNA [Concomitant]
  4. METOPROLOL [Concomitant]
  5. LISINOPRIL [Concomitant]
  6. LEVAQUIN [Concomitant]
  7. LANTUS [Concomitant]
  8. LATANOPROST [Concomitant]
     Dosage: OPHTHALMIC
  9. ZINC OXIDE [Concomitant]

REACTIONS (4)
  - Respiratory failure [Fatal]
  - Pneumonia aspiration [Fatal]
  - Gastrointestinal haemorrhage [Fatal]
  - Hypertensive heart disease [Fatal]
